FAERS Safety Report 10204009 (Version 2)
Quarter: 2014Q4

REPORT INFORMATION
  Report Type: Spontaneous
  Country: JP (occurrence: JP)
  Receive Date: 20140529
  Receipt Date: 20141111
  Transmission Date: 20150528
  Serious: Yes (Death)
  Sender: FDA-Public Use
  Company Number: JP-MALLINCKRODT-T201402305

PATIENT
  Age: 51 Year
  Sex: Female
  Weight: 40.5 kg

DRUGS (17)
  1. DEXART [Concomitant]
     Active Substance: DEXAMETHASONE SODIUM PHOSPHATE
     Dosage: 3.3 MG, UNK
     Route: 051
     Dates: start: 20131107, end: 20131129
  2. DECADRON [Concomitant]
     Active Substance: DEXAMETHASONE
     Dosage: 1 MG, UNK
     Route: 048
     Dates: start: 20131217
  3. TRAVELMIN [Concomitant]
     Active Substance: DIMENHYDRINATE
     Dosage: 3 DF, UNK
     Route: 048
     Dates: start: 20131120
  4. OXYFAST [Concomitant]
     Active Substance: OXYCODONE
     Dosage: 6.25 MG, PRN
     Route: 048
     Dates: start: 20131120
  5. MELOXICAM. [Concomitant]
     Active Substance: MELOXICAM
     Dosage: 10 MG, UNK
     Route: 048
     Dates: end: 20131126
  6. ZOMETA [Concomitant]
     Active Substance: ZOLEDRONIC ACID
     Dosage: 4 MG, UNK
     Route: 051
     Dates: start: 20131121, end: 20131121
  7. METHADONE [Suspect]
     Active Substance: METHADONE HYDROCHLORIDE
     Dosage: 5 MG, (25 MG DAILY DOSE)
     Route: 048
     Dates: start: 20140220, end: 20140223
  8. OXYFAST [Concomitant]
     Active Substance: OXYCODONE
     Dosage: 105 MG, UNK
     Route: 051
     Dates: start: 20131108, end: 20131124
  9. METHADONE [Suspect]
     Active Substance: METHADONE HYDROCHLORIDE
     Dosage: 10 MG, (30 MG DAILY DOSE)
     Route: 048
     Dates: start: 20140106, end: 20140219
  10. OXYFAST [Concomitant]
     Active Substance: OXYCODONE
     Dosage: 60 MG, UNK
     Route: 051
     Dates: start: 20131125, end: 20131127
  11. KETALAR [Concomitant]
     Active Substance: KETAMINE HYDROCHLORIDE
     Dosage: 50 MG, UNK
     Route: 051
     Dates: start: 20131112, end: 20131124
  12. TAKEPRON [Concomitant]
     Active Substance: LANSOPRAZOLE
     Dosage: 15 MG, UNK
     Route: 048
  13. METHADONE [Suspect]
     Active Substance: METHADONE HYDROCHLORIDE
     Indication: CANCER PAIN
     Dosage: 5 MG, (15 MG DAILY DOSE)
     Route: 048
     Dates: start: 20131121, end: 20140105
  14. KETALAR [Concomitant]
     Active Substance: KETAMINE HYDROCHLORIDE
     Dosage: 20 MG, UNK
     Route: 051
     Dates: start: 20131125, end: 20131126
  15. DECADRON [Concomitant]
     Active Substance: DEXAMETHASONE
     Dosage: 2 MG, UNK
     Route: 048
     Dates: start: 20131130, end: 20131216
  16. MAGMITT [Concomitant]
     Active Substance: MAGNESIUM OXIDE
     Dosage: 990 MG, UNK
     Route: 048
  17. METHADONE [Suspect]
     Active Substance: METHADONE HYDROCHLORIDE
     Dosage: 5 MG, (15 MG DAILY DOSE)
     Route: 048
     Dates: start: 20140225, end: 20140310

REACTIONS (2)
  - Ovarian cancer [Fatal]
  - Somnolence [Not Recovered/Not Resolved]

NARRATIVE: CASE EVENT DATE: 20140112
